FAERS Safety Report 4716349-9 (Version None)
Quarter: 2005Q3

REPORT INFORMATION
  Report Type: 
  Country: None (occurrence: None)
  Receive Date: 20050712
  Receipt Date: 20041220
  Transmission Date: 20060218
  Serious: Yes (Hospitalization)
  Sender: FDA-Public Use
  Company Number: M-04-469

PATIENT
  Age: 82 Year
  Sex: Male
  Weight: 79.3795 kg

DRUGS (7)
  1. PACERONE [Suspect]
     Indication: HEART RATE IRREGULAR
     Dosage: 200 MG QD PO
     Route: 048
  2. PROPRANOLOL [Concomitant]
  3. OMEPRAZOLE [Concomitant]
  4. FOSAMAX [Concomitant]
  5. ZOCOR [Concomitant]
  6. FLOMAX [Concomitant]
  7. HYTRIN [Concomitant]

REACTIONS (1)
  - ARRHYTHMIA [None]
